FAERS Safety Report 11282293 (Version 1)
Quarter: 2015Q3

REPORT INFORMATION
  Report Type: Spontaneous
  Country: US (occurrence: US)
  Receive Date: 20150720
  Receipt Date: 20150720
  Transmission Date: 20151125
  Serious: No
  Sender: FDA-Public Use
  Company Number: US-009507513-1507USA006114

PATIENT
  Sex: Female

DRUGS (1)
  1. RAGWITEK [Suspect]
     Active Substance: AMBROSIA ARTEMISIIFOLIA POLLEN
     Dosage: UNKNOWN
     Route: 048

REACTIONS (4)
  - Oedema [Recovering/Resolving]
  - Swollen tongue [Recovering/Resolving]
  - Throat tightness [Recovering/Resolving]
  - Throat irritation [Recovering/Resolving]
